FAERS Safety Report 24304329 (Version 1)
Quarter: 2024Q3

REPORT INFORMATION
  Report Type: Spontaneous
  Country: SA (occurrence: SA)
  Receive Date: 20240910
  Receipt Date: 20240910
  Transmission Date: 20241016
  Serious: Yes (Death)
  Sender: PFIZER
  Company Number: SA-PFIZER INC-PV202400117520

PATIENT
  Age: 3 Year
  Sex: Male

DRUGS (3)
  1. PIPERACILLIN SODIUM\TAZOBACTAM SODIUM [Suspect]
     Active Substance: PIPERACILLIN SODIUM\TAZOBACTAM SODIUM
     Indication: Niemann-Pick disease
     Dosage: UNK
     Route: 042
  2. ALBUTEROL [Suspect]
     Active Substance: ALBUTEROL
     Indication: Niemann-Pick disease
     Dosage: UNK
  3. SODIUM CHLORIDE [Suspect]
     Active Substance: SODIUM CHLORIDE
     Indication: Niemann-Pick disease
     Dosage: UNK

REACTIONS (2)
  - Off label use [Fatal]
  - Drug ineffective for unapproved indication [Fatal]
